FAERS Safety Report 23072684 (Version 5)
Quarter: 2024Q1

REPORT INFORMATION
  Report Type: Spontaneous
  Country: HR (occurrence: HR)
  Receive Date: 20231017
  Receipt Date: 20240219
  Transmission Date: 20240410
  Serious: Yes (Other)
  Sender: FDA-Public Use
  Company Number: None

PATIENT
  Age: 63 Year
  Sex: Male

DRUGS (27)
  1. CYCLOPHOSPHAMIDE [Suspect]
     Active Substance: CYCLOPHOSPHAMIDE
     Dosage: UNK 1 TIME AS A PART OF KD+PACE REGIMEN
     Route: 065
     Dates: start: 202303
  2. CYCLOPHOSPHAMIDE [Suspect]
     Active Substance: CYCLOPHOSPHAMIDE
     Indication: Light chain disease
     Dosage: UNK 5 TIMES AS A PART OF VCD REGIMEN
     Route: 065
     Dates: start: 202203, end: 202205
  3. CARFILZOMIB [Suspect]
     Active Substance: CARFILZOMIB
     Indication: Plasma cell myeloma
     Dosage: UNK, 1 TIME AS A PART OF KD+PACE REGIMEN
     Route: 065
     Dates: start: 202303
  4. CARFILZOMIB [Suspect]
     Active Substance: CARFILZOMIB
     Indication: Light chain disease
     Dosage: UNK, 3 TIMES, AS A PART OF KD+MP REGIMEN
     Route: 065
     Dates: start: 202304, end: 202306
  5. CISPLATIN [Suspect]
     Active Substance: CISPLATIN
     Indication: Plasma cell myeloma
     Dosage: UNK, 1 TIME AS A PART OF KD+PACE REGIMEN
     Route: 065
     Dates: start: 202303
  6. CISPLATIN [Suspect]
     Active Substance: CISPLATIN
     Indication: Light chain disease
  7. DEXAMETHASONE [Suspect]
     Active Substance: DEXAMETHASONE
     Dosage: UNK 1 TIME AS A PART OF KD+PACE REGIMEN
     Route: 065
     Dates: start: 202303
  8. DEXAMETHASONE [Suspect]
     Active Substance: DEXAMETHASONE
     Dosage: UNK 3 TIMES AS A PART OF VAD+ IXAZOMIB REGIMEN
     Route: 065
     Dates: start: 202306, end: 202308
  9. DEXAMETHASONE [Suspect]
     Active Substance: DEXAMETHASONE
     Dosage: UNK 3 TIMES, AS A PART OF KD+MP REGIMEN
     Route: 065
     Dates: start: 202304, end: 202306
  10. DEXAMETHASONE [Suspect]
     Active Substance: DEXAMETHASONE
     Dosage: UNK 5 TIMES AS A PART OF DRD REGIMEN
     Route: 065
     Dates: start: 202208, end: 202302
  11. DEXAMETHASONE [Suspect]
     Active Substance: DEXAMETHASONE
     Indication: Light chain disease
     Dosage: UNK 5 TIMES AS A PART OF VCD REGIMEN (FROM MAR-2022 TO MAY-2022)
     Route: 065
     Dates: start: 202203, end: 202205
  12. DARZALEX [Suspect]
     Active Substance: DARATUMUMAB
     Indication: Plasma cell myeloma
     Dosage: UNK, 5 TIMES AS A PART OF DRD REGIMEN
     Route: 065
     Dates: start: 202208, end: 202302
  13. DARZALEX [Suspect]
     Active Substance: DARATUMUMAB
     Indication: Light chain disease
  14. DOXORUBICIN [Suspect]
     Active Substance: DOXORUBICIN
     Indication: Plasma cell myeloma
     Dosage: UNK, 1 TIME AS A PART OF KD+PACE REGIMEN
     Route: 065
     Dates: start: 202303
  15. DOXORUBICIN [Suspect]
     Active Substance: DOXORUBICIN
     Indication: Light chain disease
     Dosage: UNK, 3 TIMES AS A PART OF VAD+ IXAZOMIB REGIMEN
     Route: 065
     Dates: start: 202306, end: 202308
  16. ETOPOSIDE [Suspect]
     Active Substance: ETOPOSIDE
     Indication: Plasma cell myeloma
     Dosage: UNK, 1 TIME AS A PART OF KD+PACE REGIMEN
     Route: 065
     Dates: start: 202303
  17. IXAZOMIB [Suspect]
     Active Substance: IXAZOMIB
     Indication: Plasma cell myeloma
     Dosage: UNK, 3 TIMES AS A PART OF VAD+ IXAZOMIB REGIMEN
     Route: 065
     Dates: start: 202306, end: 202308
  18. IXAZOMIB [Suspect]
     Active Substance: IXAZOMIB
     Indication: Light chain disease
  19. LENALIDOMIDE [Suspect]
     Active Substance: LENALIDOMIDE
     Indication: Plasma cell myeloma
     Dosage: UNK, 5 TIMES AS A PART OF DRD REGIMEN
     Route: 065
     Dates: start: 202208, end: 202302
  20. LENALIDOMIDE [Suspect]
     Active Substance: LENALIDOMIDE
     Indication: Light chain disease
  21. MELPHALAN [Suspect]
     Active Substance: MELPHALAN
     Indication: Light chain disease
     Dosage: UNK 3 TIMES, AS A PART OF KD+MP REGIMEN
     Route: 065
     Dates: start: 202304, end: 202306
  22. MELPHALAN [Suspect]
     Active Substance: MELPHALAN
     Indication: Plasma cell myeloma
  23. PREDNISONE [Suspect]
     Active Substance: PREDNISONE
     Indication: Light chain disease
     Dosage: UNK 3 TIMES, AS A PART OF KD+MP REGIMEN
     Route: 065
     Dates: start: 202304, end: 202306
  24. PREDNISONE [Suspect]
     Active Substance: PREDNISONE
     Indication: Plasma cell myeloma
  25. VELCADE [Suspect]
     Active Substance: BORTEZOMIB
     Indication: Plasma cell myeloma
     Dosage: UNK 5 TIMES AS A PART OF VCD REGIMEN
     Route: 065
     Dates: start: 202203, end: 202205
  26. VINCRISTINE [Suspect]
     Active Substance: VINCRISTINE
     Indication: Plasma cell myeloma
     Dosage: UNK, 3 TIMES AS A PART OF VAD+ IXAZOMIB REGIMEN
     Route: 065
     Dates: start: 202306, end: 202308
  27. VINCRISTINE [Suspect]
     Active Substance: VINCRISTINE
     Indication: Light chain disease

REACTIONS (4)
  - Light chain disease [Unknown]
  - Febrile neutropenia [Unknown]
  - Therapy partial responder [Unknown]
  - Plasma cell myeloma [Unknown]
